FAERS Safety Report 7713819-6 (Version None)
Quarter: 2011Q3

REPORT INFORMATION
  Report Type: 
  Country: None (occurrence: None)
  Receive Date: 20110826
  Receipt Date: 20110824
  Transmission Date: 20111222
  Serious: No
  Sender: FDA-Public Use
  Company Number: US-PFIZER INC-2011189687

PATIENT
  Sex: Male
  Weight: 102 kg

DRUGS (17)
  1. OXYCONTIN [Concomitant]
     Indication: BACK DISORDER
     Dosage: 80 MG, 2X/DAY
     Route: 048
  2. TRAZODONE HYDROCHLORIDE [Concomitant]
     Indication: DEPRESSION
     Dosage: 150 MG, 1X/DAY
  3. POTASSIUM CHLORIDE [Concomitant]
     Dosage: 10 MG, 3X/DAY
  4. PAXIL [Concomitant]
     Indication: DEPRESSION
     Dosage: 10 MG, 1X/DAY
  5. PENTOXIFYLLINE [Concomitant]
     Indication: DEPRESSION
     Dosage: 400 MG, 2X/DAY
  6. VITAMIN B-12 [Concomitant]
     Indication: PSORIASIS
     Dosage: UNK
  7. CHANTIX [Suspect]
     Dosage: 1 MG, 2X/DAY
     Route: 048
     Dates: start: 20110101, end: 20110101
  8. OXYCONTIN [Concomitant]
     Indication: NEUROPATHY PERIPHERAL
  9. VISTARIL [Concomitant]
     Indication: NAUSEA
     Dosage: UNK, AS NEEDED
     Route: 048
  10. OMEPRAZOLE [Concomitant]
     Indication: GASTROOESOPHAGEAL REFLUX DISEASE
     Dosage: 40 MG, 2X/DAY
  11. GABAPENTIN [Concomitant]
     Dosage: 1200 MG, 2X/DAY
     Route: 048
  12. CHANTIX [Suspect]
     Indication: SMOKING CESSATION THERAPY
     Dosage: 0.5 MG, 2X/DAY
     Route: 048
     Dates: start: 20110701, end: 20110101
  13. ATENOLOL [Concomitant]
     Indication: HYPERTENSION
     Dosage: 25 MG, 1X/DAY
  14. SPIRONOLACTONE [Concomitant]
     Indication: PSORIASIS
     Dosage: 15 MG, 2X/DAY
  15. BACLOFEN [Concomitant]
     Indication: BACK DISORDER
     Dosage: 10 MG, 2X/DAY
  16. PAXIL [Concomitant]
     Dosage: 40 MG, 1X/DAY
  17. LACTULOSE [Concomitant]
     Dosage: 30 ML, 3X/DAY

REACTIONS (2)
  - NAUSEA [None]
  - VOMITING [None]
